FAERS Safety Report 19196205 (Version 1)
Quarter: 2021Q2

REPORT INFORMATION
  Report Type: Spontaneous
  Country: NL (occurrence: NL)
  Receive Date: 20210429
  Receipt Date: 20210429
  Transmission Date: 20210717
  Serious: Yes (Life-Threatening, Disabling)
  Sender: FDA-Public Use
  Company Number: NL-TEVA-2021-NL-1904824

PATIENT
  Age: 31 Year
  Sex: Female
  Weight: 57 kg

DRUGS (3)
  1. FINGOLIMOD CAPSULE 0,5MG / BRAND NAME NOT SPECIFIED [Suspect]
     Active Substance: FINGOLIMOD
     Dosage: 0.5MG ONCE DAILY FOR 2?3 MONTHS FOLLOWED BY 3X / WEEK FOR 2 YEARS:UNIT DOSE:0.5MILLIGRAM
     Dates: start: 20181105, end: 2019
  2. COLECALCIFEROL CAPSULE    400IE / BRAND NAME NOT SPECIFIED [Concomitant]
     Dosage: 400 UNITSTHERAPY START DATE :THERAPY END DATE :ASKU
  3. FINGOLIMOD CAPSULE 0,5MG / BRAND NAME NOT SPECIFIED [Suspect]
     Active Substance: FINGOLIMOD
     Indication: MULTIPLE SCLEROSIS
     Dosage: 0.5MG ONCE DAILY FOR 2?3 MONTHS FOLLOWED BY 3X / WEEK FOR 2 YEARS
     Dates: start: 2019, end: 20210322

REACTIONS (1)
  - Precursor T-lymphoblastic lymphoma/leukaemia [Not Recovered/Not Resolved]

NARRATIVE: CASE EVENT DATE: 20210319
